FAERS Safety Report 18962565 (Version 1)
Quarter: 2021Q1

REPORT INFORMATION
  Report Type: Report from Study
  Country: ES (occurrence: ES)
  Receive Date: 20210303
  Receipt Date: 20210303
  Transmission Date: 20210420
  Serious: Yes (Other)
  Sender: FDA-Public Use
  Company Number: ES-MYLANLABS-2021M1012224

PATIENT

DRUGS (14)
  1. VINCRISTINE [Concomitant]
     Active Substance: VINCRISTINE
     Indication: CONGENITAL RETINOBLASTOMA
     Dosage: SYSTEMIC CHEMOTHERAPY
     Route: 065
  2. DOXORUBICIN [Concomitant]
     Active Substance: DOXORUBICIN
     Indication: VITREOUS DISORDER
  3. POVIDONE?IODINE. [Concomitant]
     Active Substance: POVIDONE-IODINE
     Indication: INFECTION PROPHYLAXIS
     Dosage: UNK
     Route: 065
  4. VINCRISTINE [Concomitant]
     Active Substance: VINCRISTINE
     Indication: VITREOUS DISORDER
  5. MELPHALAN. [Concomitant]
     Active Substance: MELPHALAN
     Indication: CONGENITAL RETINOBLASTOMA
     Dosage: SELECTIVE CHEMOTHERAPY
     Route: 013
  6. MELPHALAN. [Suspect]
     Active Substance: MELPHALAN
     Indication: CONGENITAL RETINOBLASTOMA
     Dosage: 0.09ML(30 MCG) WAS INJECTED INTO THE VITREOUS
  7. SALINE                             /00075401/ [Concomitant]
     Active Substance: SODIUM CHLORIDE
     Indication: VEHICLE SOLUTION USE
     Dosage: 0.3 MILLILITER, CYCLE
  8. DEXAMETHASONE. [Concomitant]
     Active Substance: DEXAMETHASONE
     Indication: PRODUCT USED FOR UNKNOWN INDICATION
     Dosage: UNK
     Route: 065
  9. CARBOPLATIN. [Concomitant]
     Active Substance: CARBOPLATIN
     Indication: CONGENITAL RETINOBLASTOMA
     Dosage: 333.3 MILLIGRAM/SQ. METER, CYCLE,CARBOPLATIN ON DAY 1 OF A 21?DAY CYCLE
     Route: 065
  10. DOXORUBICIN [Concomitant]
     Active Substance: DOXORUBICIN
     Indication: CONGENITAL RETINOBLASTOMA
     Dosage: SYSTEMIC CHEMOTHERAPY
     Route: 065
  11. MELPHALAN. [Suspect]
     Active Substance: MELPHALAN
     Indication: VITREOUS DISORDER
  12. TOBRAMYCIN. [Concomitant]
     Active Substance: TOBRAMYCIN
     Indication: PRODUCT USED FOR UNKNOWN INDICATION
     Dosage: EYE DROPS FOUR TIMES PER DAY FOR ONE WEEK AFTER EVERY CYCLE OF INTRAVITREAL MELPHALAN THERAPY
     Route: 031
  13. MELPHALAN. [Concomitant]
     Active Substance: MELPHALAN
     Indication: VITREOUS DISORDER
  14. CARBOPLATIN. [Concomitant]
     Active Substance: CARBOPLATIN
     Indication: VITREOUS DISORDER

REACTIONS (2)
  - Off label use [Unknown]
  - Administration site scar [Unknown]
